FAERS Safety Report 9160433 (Version 1)
Quarter: 2013Q1

REPORT INFORMATION
  Report Type: Spontaneous
  Country: GB (occurrence: None)
  Receive Date: 20130215
  Receipt Date: 20130215
  Transmission Date: 20140127
  Serious: Yes (Other)
  Sender: FDA-Public Use
  Company Number: AUR-APL-2013-01297

PATIENT
  Age: 34 Year
  Sex: Male
  Weight: 89.2 kg

DRUGS (3)
  1. RIBAVIRIN [Suspect]
     Indication: HEPATITIS C
     Route: 048
     Dates: start: 20121106
  2. PEGASYS [Suspect]
     Indication: HEPATITIS C
     Dosage: 180 MCG, 1 IN 1 WK
     Route: 058
     Dates: start: 20121106
  3. TELAPREVIR [Suspect]
     Indication: HEPATITIS C
     Dosage: 2250 MG (750 MG, 3 IN 1 D)
     Route: 048

REACTIONS (5)
  - Urticaria [None]
  - Paraesthesia [None]
  - Pruritus [None]
  - Skin burning sensation [None]
  - Peripheral sensory neuropathy [None]
